FAERS Safety Report 22643512 (Version 1)
Quarter: 2023Q2

REPORT INFORMATION
  Report Type: Spontaneous
  Country: US (occurrence: US)
  Receive Date: 20230627
  Receipt Date: 20230627
  Transmission Date: 20230721
  Serious: Yes (Hospitalization, Other)
  Sender: FDA-Public Use
  Company Number: US-LAURUS LABS LIMITED-2023LAU000051

PATIENT
  Sex: Male

DRUGS (4)
  1. GABAPENTIN [Suspect]
     Active Substance: GABAPENTIN
     Indication: Myofascial pain syndrome
     Dosage: 300 MILLIGRAM, BID PER DAY
     Route: 048
  2. CYCLOBENZAPRINE [Concomitant]
     Active Substance: CYCLOBENZAPRINE
     Indication: Myofascial pain syndrome
     Dosage: 10 MILLIGRAM, QD
     Route: 048
  3. ACETAMINOPHEN [Concomitant]
     Active Substance: ACETAMINOPHEN
     Indication: Myofascial pain syndrome
     Dosage: 650 MILLIGRAM, QID
     Route: 048
  4. DEXAMETHASONE [Concomitant]
     Active Substance: DEXAMETHASONE
     Indication: Myofascial pain syndrome
     Dosage: 10 MILLIGRAM
     Route: 065

REACTIONS (1)
  - Atrial fibrillation [Recovered/Resolved]
